FAERS Safety Report 19442663 (Version 2)
Quarter: 2021Q3

REPORT INFORMATION
  Report Type: Other
  Country: US (occurrence: US)
  Receive Date: 20210621
  Receipt Date: 20210921
  Transmission Date: 20211014
  Serious: No
  Sender: FDA-Public Use
  Company Number: US-ACORDA-ACO_168941_2021

PATIENT
  Sex: Female

DRUGS (3)
  1. INBRIJA [Suspect]
     Active Substance: LEVODOPA
     Indication: PARKINSON^S DISEASE
     Dosage: 2 DOSAGE FORM, PRN, NOT TO EXCEED 5 DOSES A DAY
     Dates: start: 20210430
  2. INBRIJA [Suspect]
     Active Substance: LEVODOPA
     Indication: ON AND OFF PHENOMENON
  3. CARBIDOPA LEVODOPA [Concomitant]
     Active Substance: CARBIDOPA\LEVODOPA
     Indication: PRODUCT USED FOR UNKNOWN INDICATION
     Dosage: 25/100 MG 4 TIMES A DAY
     Route: 065

REACTIONS (9)
  - Product packaging issue [Unknown]
  - Wrong technique in device usage process [Unknown]
  - Discomfort [Unknown]
  - Device occlusion [Unknown]
  - Therapeutic product effect variable [Unknown]
  - Product residue present [Unknown]
  - Malaise [Unknown]
  - Cough [Not Recovered/Not Resolved]
  - Device difficult to use [Unknown]
